FAERS Safety Report 23889096 (Version 1)
Quarter: 2024Q2

REPORT INFORMATION
  Report Type: Spontaneous
  Country: GB (occurrence: GB)
  Receive Date: 20240523
  Receipt Date: 20240523
  Transmission Date: 20240715
  Serious: Yes (Death)
  Sender: FDA-Public Use
  Company Number: GB-RP-042649

PATIENT
  Age: 48 Year

DRUGS (2)
  1. OXYCODONE [Suspect]
     Active Substance: OXYCODONE\OXYCODONE HYDROCHLORIDE
     Route: 065
  2. AMITRIPTYLINE [Suspect]
     Active Substance: AMITRIPTYLINE
     Route: 065

REACTIONS (3)
  - Drug interaction [Fatal]
  - Sedation [Fatal]
  - Product prescribing error [Fatal]
